FAERS Safety Report 23719743 (Version 1)
Quarter: 2024Q2

REPORT INFORMATION
  Report Type: Spontaneous
  Country: US (occurrence: None)
  Receive Date: 20240408
  Receipt Date: 20240408
  Transmission Date: 20240716
  Serious: Yes (Other)
  Sender: FDA-Public Use
  Company Number: None

PATIENT
  Age: 50 Year
  Sex: Female
  Weight: 115.2 kg

DRUGS (1)
  1. PHYTONADIONE [Suspect]
     Active Substance: PHYTONADIONE
     Indication: Anticoagulant therapy
     Route: 042

REACTIONS (4)
  - Crying [None]
  - Pruritus [None]
  - Skin warm [None]
  - Decreased activity [None]

NARRATIVE: CASE EVENT DATE: 20240120
